FAERS Safety Report 17928249 (Version 4)
Quarter: 2021Q1

REPORT INFORMATION
  Report Type: Spontaneous
  Country: DE (occurrence: DE)
  Receive Date: 20200622
  Receipt Date: 20210303
  Transmission Date: 20210419
  Serious: Yes (Hospitalization)
  Sender: FDA-Public Use
  Company Number: NVSC2020DE076272

PATIENT
  Age: 66 Year
  Sex: Female

DRUGS (4)
  1. MTX HEXAL [Suspect]
     Active Substance: METHOTREXATE SODIUM
     Dosage: 15 MG, UNKNOWN
     Route: 065
  2. MTX HEXAL [Suspect]
     Active Substance: METHOTREXATE SODIUM
     Dosage: 25 MG, UNKNOWN
     Route: 065
  3. MTX HEXAL [Suspect]
     Active Substance: METHOTREXATE SODIUM
     Indication: PRODUCT USED FOR UNKNOWN INDICATION
     Dosage: 15 MG, QW
     Route: 065
  4. BENEPALI [Suspect]
     Active Substance: ETANERCEPT
     Indication: RHEUMATOID ARTHRITIS
     Dosage: 50 MG, QW
     Route: 065
     Dates: start: 201806

REACTIONS (7)
  - Abdominal hernia [Recovered/Resolved]
  - Abdominal hernia [Recovered/Resolved]
  - Arthralgia [Unknown]
  - Onychomycosis [Not Recovered/Not Resolved]
  - Blood pressure fluctuation [Recovered/Resolved]
  - Abdominal migraine [Recovered/Resolved]
  - Spinal pain [Unknown]

NARRATIVE: CASE EVENT DATE: 20190829
